FAERS Safety Report 13765544 (Version 12)
Quarter: 2018Q4

REPORT INFORMATION
  Report Type: Report from Study
  Country: CA (occurrence: CA)
  Receive Date: 20170718
  Receipt Date: 20181108
  Transmission Date: 20190204
  Serious: Yes (Other)
  Sender: FDA-Public Use
  Company Number: CA-BRISTOL-MYERS SQUIBB COMPANY-BMS-2017-054582

PATIENT
  Age: 68 Year
  Sex: Female

DRUGS (3)
  1. AMOX                               /00249601/ [Concomitant]
     Indication: PRODUCT USED FOR UNKNOWN INDICATION
     Dosage: 1 DF, UNK
     Route: 065
     Dates: start: 20181025
  2. ABATACEPT [Suspect]
     Active Substance: ABATACEPT
     Indication: RHEUMATOID ARTHRITIS
     Dosage: 125 MG, QWK
     Route: 058
     Dates: start: 20170530
  3. COUMADIN [Suspect]
     Active Substance: WARFARIN SODIUM
     Indication: PRODUCT USED FOR UNKNOWN INDICATION
     Route: 065

REACTIONS (19)
  - Vision blurred [Unknown]
  - Tooth disorder [Recovering/Resolving]
  - Oedema peripheral [Not Recovered/Not Resolved]
  - Dyskinesia [Unknown]
  - Dizziness [Unknown]
  - Fatigue [Not Recovered/Not Resolved]
  - Back pain [Not Recovered/Not Resolved]
  - International normalised ratio fluctuation [Recovering/Resolving]
  - Movement disorder [Not Recovered/Not Resolved]
  - Pain in extremity [Unknown]
  - Headache [Unknown]
  - Contusion [Unknown]
  - Peripheral swelling [Recovering/Resolving]
  - Gingivitis [Unknown]
  - Syringe issue [Unknown]
  - Visual impairment [Unknown]
  - Hypoaesthesia [Recovered/Resolved]
  - Cataract [Unknown]
  - Oropharyngeal pain [Unknown]

NARRATIVE: CASE EVENT DATE: 20170606
